FAERS Safety Report 18190307 (Version 2)
Quarter: 2020Q3

REPORT INFORMATION
  Report Type: Spontaneous
  Country: US (occurrence: US)
  Receive Date: 20200825
  Receipt Date: 20200831
  Transmission Date: 20201103
  Serious: Yes (Hospitalization, Other)
  Sender: FDA-Public Use
  Company Number: US-SA-2020SA215419

PATIENT

DRUGS (7)
  1. PREDNISOLONE ACETATE. [Suspect]
     Active Substance: PREDNISOLONE ACETATE
     Indication: VOGT-KOYANAGI-HARADA DISEASE
     Dosage: 1 %, TID, IN BOTH EYES (EYE DROPS 1 %)
  2. METHOTREXATE. [Suspect]
     Active Substance: METHOTREXATE
     Indication: VOGT-KOYANAGI-HARADA DISEASE
     Dosage: UNK
     Route: 031
  3. TRIAMCINOLONE ACETONIDE. [Suspect]
     Active Substance: TRIAMCINOLONE ACETONIDE
     Indication: VOGT-KOYANAGI-HARADA DISEASE
     Dosage: TWO INJECTIONS OF SUB?TENON?S TRIAMCINOLONE ACETATE
     Route: 042
  4. METHOTREXATE. [Suspect]
     Active Substance: METHOTREXATE
     Indication: UVEITIS
  5. PREDNISONE. [Suspect]
     Active Substance: PREDNISONE
     Indication: VOGT-KOYANAGI-HARADA DISEASE
     Dosage: 25 MG, QD
  6. MYCOPHENOLATE MOFETIL. [Suspect]
     Active Substance: MYCOPHENOLATE MOFETIL
     Indication: VOGT-KOYANAGI-HARADA DISEASE
     Dosage: 500 MG, BID
  7. ADALIMUMAB [Suspect]
     Active Substance: ADALIMUMAB
     Indication: VOGT-KOYANAGI-HARADA DISEASE
     Dosage: 6 DF (SIX TREATMENTS OF SUBCUTANEOUS ADALIMUMAB)
     Route: 058

REACTIONS (11)
  - Necrosis [Unknown]
  - Cystoid macular oedema [Recovered/Resolved]
  - Eye pain [Recovered/Resolved]
  - Insomnia [Unknown]
  - Visual impairment [Recovering/Resolving]
  - Vogt-Koyanagi-Harada disease [Recovering/Resolving]
  - Eye inflammation [Recovered/Resolved]
  - Treatment failure [Recovering/Resolving]
  - Off label use [Unknown]
  - Condition aggravated [Recovering/Resolving]
  - Cataract [Recovering/Resolving]
